FAERS Safety Report 10642474 (Version 1)
Quarter: 2014Q4

REPORT INFORMATION
  Report Type: Spontaneous
  Country: US (occurrence: None)
  Receive Date: 20141208
  Receipt Date: 20141208
  Transmission Date: 20150529
  Serious: Yes (Disabling)
  Sender: FDA-Public Use
  Company Number: None

PATIENT
  Age: 46 Year
  Sex: Female

DRUGS (1)
  1. CLONIDINE. [Suspect]
     Active Substance: CLONIDINE
     Indication: HYPERTENSION
     Dosage: 1 TAB, TWICE DAILY, TAKEN BY MOUTH
     Route: 048

REACTIONS (8)
  - Terminal insomnia [None]
  - Cardiovascular disorder [None]
  - Tendonitis [None]
  - Micturition urgency [None]
  - Dyspnoea [None]
  - Musculoskeletal stiffness [None]
  - Joint range of motion decreased [None]
  - Spinal disorder [None]

NARRATIVE: CASE EVENT DATE: 20121031
